FAERS Safety Report 12875978 (Version 1)
Quarter: 2016Q4

REPORT INFORMATION
  Report Type: Spontaneous
  Country: US (occurrence: US)
  Receive Date: 20161024
  Receipt Date: 20161024
  Transmission Date: 20170207
  Serious: No
  Sender: FDA-Public Use
  Company Number: US-JAZZ-2016-US-015158

PATIENT
  Sex: Female

DRUGS (39)
  1. ESTAZOLAM. [Concomitant]
     Active Substance: ESTAZOLAM
  2. METHOCARBAMOL. [Concomitant]
     Active Substance: METHOCARBAMOL
  3. UREA. [Concomitant]
     Active Substance: UREA
  4. VENLAFAXINE HCL [Concomitant]
     Active Substance: VENLAFAXINE HYDROCHLORIDE
  5. VITAMIN D3 [Concomitant]
     Active Substance: CHOLECALCIFEROL
  6. IBUPROFEN. [Concomitant]
     Active Substance: IBUPROFEN
  7. TRIAMCINOLONE [Concomitant]
     Active Substance: TRIAMCINOLONE
  8. PROVIGIL [Concomitant]
     Active Substance: MODAFINIL
  9. BUSPIRONE [Concomitant]
     Active Substance: BUSPIRONE HYDROCHLORIDE
  10. XYREM [Suspect]
     Active Substance: SODIUM OXYBATE
     Dosage: 2.25 G, BID
     Route: 048
     Dates: start: 201602
  11. MODAFINIL. [Concomitant]
     Active Substance: MODAFINIL
  12. OXYGEN. [Concomitant]
     Active Substance: OXYGEN
  13. SINEMET [Concomitant]
     Active Substance: CARBIDOPA\LEVODOPA
  14. ENABLEX [Concomitant]
     Active Substance: DARIFENACIN HYDROBROMIDE
  15. GEODON [Concomitant]
     Active Substance: ZIPRASIDONE HYDROCHLORIDE\ZIPRASIDONE MESYLATE
  16. NORCO [Concomitant]
     Active Substance: ACETAMINOPHEN\HYDROCODONE BITARTRATE
  17. GABAPENTIN. [Concomitant]
     Active Substance: GABAPENTIN
  18. DOXEPIN [Concomitant]
     Active Substance: DOXEPIN
  19. PANTOPRAZOLE SODIUM. [Concomitant]
     Active Substance: PANTOPRAZOLE SODIUM
  20. SYMBICORT [Concomitant]
     Active Substance: BUDESONIDE\FORMOTEROL FUMARATE DIHYDRATE
  21. PREVACID [Concomitant]
     Active Substance: LANSOPRAZOLE
  22. TRAZODONE [Concomitant]
     Active Substance: TRAZODONE HYDROCHLORIDE
  23. DRISDOL [Concomitant]
     Active Substance: ERGOCALCIFEROL
  24. XYREM [Suspect]
     Active Substance: SODIUM OXYBATE
     Indication: CATAPLEXY
     Dosage: 1.75 G, FIRST DOSE
     Route: 048
     Dates: start: 200908, end: 2010
  25. XYREM [Suspect]
     Active Substance: SODIUM OXYBATE
     Dosage: 1.5 G, SECOND DOSE
     Route: 048
     Dates: start: 200908, end: 2010
  26. BACLOFEN. [Concomitant]
     Active Substance: BACLOFEN
  27. LORAZEPAM. [Concomitant]
     Active Substance: LORAZEPAM
  28. METOCLOPRAMIDE. [Concomitant]
     Active Substance: METOCLOPRAMIDE
  29. OXYCODONE AND ACETAMINOPHEN [Concomitant]
     Active Substance: ACETAMINOPHEN\OXYCODONE HYDROCHLORIDE
  30. TEMAZEPAM. [Concomitant]
     Active Substance: TEMAZEPAM
  31. ERGOCALCIFEROL. [Concomitant]
     Active Substance: ERGOCALCIFEROL
  32. XYREM [Suspect]
     Active Substance: SODIUM OXYBATE
     Indication: NARCOLEPSY
     Dosage: 4.5 G, BID
     Route: 048
     Dates: start: 200902, end: 200908
  33. XYREM [Suspect]
     Active Substance: SODIUM OXYBATE
     Dosage: 1.5 G, BID
     Route: 048
     Dates: start: 201407, end: 201602
  34. LAMOTRIGINE. [Concomitant]
     Active Substance: LAMOTRIGINE
  35. LEXAPRO [Concomitant]
     Active Substance: ESCITALOPRAM OXALATE
  36. CITALOPRAM [Concomitant]
     Active Substance: CITALOPRAM HYDROBROMIDE
  37. CLONIDINE HCL [Concomitant]
     Active Substance: CLONIDINE HYDROCHLORIDE
  38. NABUMETONE. [Concomitant]
     Active Substance: NABUMETONE
  39. LEVOFLOXACIN. [Concomitant]
     Active Substance: LEVOFLOXACIN

REACTIONS (2)
  - Dyspnoea [Unknown]
  - Back pain [Unknown]

NARRATIVE: CASE EVENT DATE: 2014
